FAERS Safety Report 14274414 (Version 1)
Quarter: 2017Q4

REPORT INFORMATION
  Report Type: Spontaneous
  Country: US (occurrence: US)
  Receive Date: 20171212
  Receipt Date: 20171212
  Transmission Date: 20180321
  Serious: Yes (Death, Hospitalization)
  Sender: FDA-Public Use
  Company Number: US-JNJFOC-20171208884

PATIENT
  Age: 37 Year
  Sex: Female

DRUGS (11)
  1. DEXTROMETHORPHAN [Suspect]
     Active Substance: DEXTROMETHORPHAN
     Indication: SUICIDE ATTEMPT
     Route: 055
  2. DIAZEPAM. [Suspect]
     Active Substance: DIAZEPAM
     Indication: SUICIDE ATTEMPT
     Route: 055
  3. AMPHETAMINE [Suspect]
     Active Substance: AMPHETAMINE
     Indication: SUICIDE ATTEMPT
     Route: 055
  4. CARBON MONOXIDE [Suspect]
     Active Substance: CARBON MONOXIDE
     Indication: SUICIDE ATTEMPT
     Route: 055
  5. OXYCODONE [Suspect]
     Active Substance: OXYCODONE
     Indication: SUICIDE ATTEMPT
     Route: 055
  6. TAPENTADOL [Suspect]
     Active Substance: TAPENTADOL
     Indication: SUICIDE ATTEMPT
     Route: 055
  7. ACETAMINOPHEN. [Suspect]
     Active Substance: ACETAMINOPHEN
     Route: 055
  8. ALCOHOL. [Suspect]
     Active Substance: ALCOHOL
     Indication: SUICIDE ATTEMPT
     Route: 055
  9. DIPHENHYDRAMINE. [Suspect]
     Active Substance: DIPHENHYDRAMINE
     Indication: SUICIDE ATTEMPT
     Route: 055
  10. DOXYLAMINE [Suspect]
     Active Substance: DOXYLAMINE
     Indication: SUICIDE ATTEMPT
     Route: 055
  11. ACETAMINOPHEN. [Suspect]
     Active Substance: ACETAMINOPHEN
     Indication: SUICIDE ATTEMPT
     Route: 055

REACTIONS (1)
  - Toxicity to various agents [Fatal]
